FAERS Safety Report 25650539 (Version 3)
Quarter: 2025Q3

REPORT INFORMATION
  Report Type: Report from Study
  Country: US (occurrence: US)
  Receive Date: 20250806
  Receipt Date: 20250918
  Transmission Date: 20251021
  Serious: Yes (Other)
  Sender: MALLINCKRODT
  Company Number: US-MALLINCKRODT-MNK202504525

PATIENT
  Age: 46 Year
  Sex: Female

DRUGS (3)
  1. CORTICOTROPIN [Suspect]
     Active Substance: CORTICOTROPIN
     Indication: Nephrotic syndrome
     Route: 058
  2. CORTICOTROPIN [Suspect]
     Active Substance: CORTICOTROPIN
     Indication: Nephrotic syndrome
  3. CORTICOTROPIN [Suspect]
     Active Substance: CORTICOTROPIN
     Indication: Nephrotic syndrome

REACTIONS (9)
  - COVID-19 [Unknown]
  - Thirst [Unknown]
  - Dry mouth [Unknown]
  - Contusion [Unknown]
  - Respiratory tract congestion [Unknown]
  - Increased upper airway secretion [Unknown]
  - Headache [Unknown]
  - Injection site pain [Recovered/Resolved]
  - Drug ineffective [Unknown]
